FAERS Safety Report 10160009 (Version 1)
Quarter: 2014Q2

REPORT INFORMATION
  Report Type: Spontaneous
  Country: US (occurrence: US)
  Receive Date: 20140508
  Receipt Date: 20140508
  Transmission Date: 20141212
  Serious: No
  Sender: FDA-Public Use
  Company Number: US-GLAXOSMITHKLINE-A1054932A

PATIENT
  Age: 85 Year
  Sex: Female

DRUGS (1)
  1. TYKERB [Suspect]
     Indication: NEOPLASM MALIGNANT
     Dosage: 1250MG PER DAY
     Route: 048
     Dates: start: 20130924

REACTIONS (3)
  - Fatigue [Unknown]
  - Myalgia [Unknown]
  - Joint swelling [Unknown]
